FAERS Safety Report 7081354-7 (Version None)
Quarter: 2010Q4

REPORT INFORMATION
  Report Type: 
  Country: None (occurrence: None)
  Receive Date: 20101103
  Receipt Date: 20101022
  Transmission Date: 20110411
  Serious: Yes (Hospitalization)
  Sender: FDA-Public Use
  Company Number: PHHY2010IT71960

PATIENT
  Sex: Male

DRUGS (6)
  1. SANDIMMUNE [Suspect]
     Indication: PSORIASIS
     Dosage: UNK
     Dates: start: 20100420
  2. TEGRETOL [Suspect]
     Indication: EPILEPSY
     Dosage: 400 MG, UNK
     Route: 048
     Dates: start: 19860101
  3. GARDENALE [Suspect]
     Indication: EPILEPSY
     Dosage: 50 MG, UNK
     Route: 048
     Dates: start: 19860101
  4. CALCITRIOL [Concomitant]
     Dosage: 1 MG, UNK
  5. OXATOMIDE [Concomitant]
  6. ENBREL [Concomitant]

REACTIONS (1)
  - HYPOCALCAEMIA [None]
